FAERS Safety Report 13922322 (Version 1)
Quarter: 2017Q3

REPORT INFORMATION
  Report Type: Spontaneous
  Country: FR (occurrence: FR)
  Receive Date: 20170830
  Receipt Date: 20170830
  Transmission Date: 20171127
  Serious: Yes (Death, Life-Threatening, Hospitalization)
  Sender: FDA-Public Use
  Company Number: PHHY2017FR127199

PATIENT
  Age: 61 Year
  Sex: Male

DRUGS (3)
  1. PIPERACILLINE PANPHARMA [Suspect]
     Active Substance: PIPERACILLIN SODIUM
     Indication: SEPSIS
     Dosage: 4 G, TID
     Route: 042
     Dates: start: 20170704, end: 20170802
  2. VANCOMYCIN SANDOZ [Suspect]
     Active Substance: VANCOMYCIN
     Indication: SEPSIS
     Dosage: 600 MG, BID
     Route: 042
     Dates: start: 20170703, end: 20170808
  3. PIPERACILLINE PANPHARMA [Suspect]
     Active Substance: PIPERACILLIN SODIUM
     Dosage: 4 G, QID
     Route: 042
     Dates: start: 20170702, end: 20170808

REACTIONS (1)
  - Agranulocytosis [Fatal]

NARRATIVE: CASE EVENT DATE: 20170728
